FAERS Safety Report 13465517 (Version 1)
Quarter: 2017Q2

REPORT INFORMATION
  Report Type: Spontaneous
  Country: US (occurrence: US)
  Receive Date: 20170420
  Receipt Date: 20170420
  Transmission Date: 20170830
  Serious: Yes (Hospitalization)
  Sender: FDA-Public Use
  Company Number: None

PATIENT
  Age: 81 Year
  Sex: Male
  Weight: 75.57 kg

DRUGS (2)
  1. VANCOMYCIN [Suspect]
     Active Substance: VANCOMYCIN
     Indication: OSTEOMYELITIS
     Dosage: FREQUENCY - OTHER
     Route: 042
     Dates: start: 20161224, end: 20170101
  2. AMOXICILLIN/CLAVULANATE [Suspect]
     Active Substance: AMOXICILLIN\CLAVULANATE POTASSIUM
     Indication: OSTEOMYELITIS
     Route: 048
     Dates: start: 20161229, end: 20170101

REACTIONS (5)
  - Purpura [None]
  - Therapy cessation [None]
  - Therapy change [None]
  - Dermatitis bullous [None]
  - Stevens-Johnson syndrome [None]

NARRATIVE: CASE EVENT DATE: 20170101
